FAERS Safety Report 6011650-3 (Version None)
Quarter: 2008Q4

REPORT INFORMATION
  Report Type: 
  Country: None (occurrence: None)
  Receive Date: 20081218
  Receipt Date: 20081117
  Transmission Date: 20090506
  Serious: No
  Sender: FDA-Public Use
  Company Number: US-BAYER-200814442BCC

PATIENT
  Age: 83 Year
  Sex: Female
  Weight: 56 kg

DRUGS (4)
  1. ALEVE [Suspect]
     Indication: ARTHRALGIA
     Dosage: TOTAL DAILY DOSE: 220 MG  UNIT DOSE: 220 MG
     Dates: start: 20081111, end: 20081115
  2. ALEVE [Suspect]
     Dosage: TOTAL DAILY DOSE: 440 MG  UNIT DOSE: 220 MG
     Dates: start: 20081116
  3. PRAVASTATIN [Concomitant]
  4. CLARITIN [Concomitant]

REACTIONS (1)
  - PAIN IN EXTREMITY [None]
